FAERS Safety Report 15764943 (Version 2)
Quarter: 2019Q1

REPORT INFORMATION
  Report Type: Spontaneous
  Country: US (occurrence: US)
  Receive Date: 20181227
  Receipt Date: 20190205
  Transmission Date: 20190417
  Serious: Yes (Hospitalization, Other)
  Sender: FDA-Public Use
  Company Number: US-SA-2018SA390308

PATIENT
  Age: 43 Year
  Sex: Male

DRUGS (1)
  1. ALPROLIX [Suspect]
     Active Substance: EFTRENONACOG ALFA
     Indication: HAEMOPHILIA
     Dosage: 12000 IU, QW
     Route: 042
     Dates: start: 2014

REACTIONS (8)
  - Pain [Not Recovered/Not Resolved]
  - Fall [Recovered/Resolved]
  - Infection [Recovered/Resolved]
  - Haemorrhage [Unknown]
  - Exostosis [Not Recovered/Not Resolved]
  - Ligament sprain [Not Recovered/Not Resolved]
  - Thrombosis [Unknown]
  - Gait disturbance [Unknown]

NARRATIVE: CASE EVENT DATE: 201809
